FAERS Safety Report 11198946 (Version 2)
Quarter: 2015Q2

REPORT INFORMATION
  Report Type: Report from Study
  Country: DE (occurrence: None)
  Receive Date: 20150616
  Receipt Date: 20150624
  Transmission Date: 20150821
  Serious: Yes (Hospitalization, Other)
  Sender: FDA-Public Use
  Company Number: B0912639A

PATIENT
  Age: 58 Year
  Sex: Male
  Weight: 70 kg

DRUGS (7)
  1. COMBIVIR (LAMIVUDINE + ZIDOVUDINE) [Concomitant]
  2. OMEPRAZOLE. [Concomitant]
     Active Substance: OMEPRAZOLE
  3. KIVEXA (ABACAVIR + LAMIVUDINE) [Concomitant]
  4. CELSENTRI (MARAVIROC) [Concomitant]
  5. TRIUMEQ (ABACAVIR, DOLUTEGRAVIR, LAMIVUDINE) [Concomitant]
  6. RAMIPRIL. [Concomitant]
     Active Substance: RAMIPRIL
  7. MARAVIROC (MARAVIROC) UNKNOWN [Suspect]
     Active Substance: MARAVIROC
     Indication: HIV INFECTION
     Route: 048
     Dates: start: 20120712, end: 20141030

REACTIONS (1)
  - Adenocarcinoma of colon [None]

NARRATIVE: CASE EVENT DATE: 20130714
